FAERS Safety Report 16122181 (Version 14)
Quarter: 2020Q3

REPORT INFORMATION
  Report Type: Other
  Country: BR (occurrence: BR)
  Receive Date: 20190327
  Receipt Date: 20200923
  Transmission Date: 20201102
  Serious: Yes (Other)
  Sender: FDA-Public Use
  Company Number: BR-ROCHE-2270896

PATIENT
  Age: 48 Year
  Sex: Female
  Weight: 55 kg

DRUGS (16)
  1. CORTISONE [Suspect]
     Active Substance: CORTISONE
     Indication: PRODUCT USED FOR UNKNOWN INDICATION
     Route: 065
  2. PRIMID [Concomitant]
     Indication: TREMOR
  3. IVERMECTIN. [Concomitant]
     Active Substance: IVERMECTIN
  4. OCREVUS [Suspect]
     Active Substance: OCRELIZUMAB
     Indication: MULTIPLE SCLEROSIS
     Dosage: SECOND INFUSION: 06/MAR/2019
     Route: 042
     Dates: start: 20190219
  5. LEXAPRO [Concomitant]
     Active Substance: ESCITALOPRAM OXALATE
     Indication: ANXIETY
  6. METICORTEN [Suspect]
     Active Substance: PREDNISONE
     Dosage: 1 TABLET
     Route: 065
  7. FLUOXETINE [Concomitant]
     Active Substance: FLUOXETINE HYDROCHLORIDE
     Indication: ANXIETY
     Dosage: ADMINISTRATION IN THE AFTERNOON
  8. LEXOTAN [Suspect]
     Active Substance: BROMAZEPAM
     Indication: DEPRESSION
     Route: 065
  9. METICORTEN [Suspect]
     Active Substance: PREDNISONE
     Indication: HEMIPLEGIA
     Dosage: CONTINUED TO USE METICORTEN 3 TABLETS 20 MG/DAILY FOR 5 DAYS, THEN SHE DECREASED IT TO 2 TABLETS FOR
     Route: 065
  10. VITAMIN C [Concomitant]
     Active Substance: ASCORBIC ACID
  11. METICORTEN [Suspect]
     Active Substance: PREDNISONE
     Dosage: 2 TABLETS FOR 2 DAYS
     Route: 065
  12. PARACETAMOL [Concomitant]
     Active Substance: ACETAMINOPHEN
  13. METICORTEN [Suspect]
     Active Substance: PREDNISONE
     Dosage: CONTINUED TO USE METICORTEN 3 TABLETS 20 MG/DAILY FOR 5 DAYS
     Route: 065
  14. METICORTEN [Suspect]
     Active Substance: PREDNISONE
     Dosage: HALF TABLET.
     Route: 065
  15. COMPLEX B [Concomitant]
     Active Substance: CALCIUM PANTOTHENATE\CYANOCOBALAMIN\NIACINAMIDE\PYRIDOXINE HYDROCHLORIDE\RIBOFLAVIN\THIAMINE MONONITRATE
  16. ESCITALOPRAM OXALATE. [Concomitant]
     Active Substance: ESCITALOPRAM OXALATE

REACTIONS (23)
  - Reflexes abnormal [Recovered/Resolved]
  - Discomfort [Recovered/Resolved]
  - Sensory loss [Unknown]
  - Hemiplegia [Unknown]
  - Alanine aminotransferase abnormal [Recovered/Resolved]
  - Uhthoff^s phenomenon [Recovered/Resolved]
  - Muscle spasms [Recovered/Resolved]
  - Candida infection [Recovered/Resolved]
  - Sensory loss [Recovered/Resolved]
  - Balance disorder [Recovered/Resolved]
  - Fatigue [Recovered/Resolved]
  - White blood cell count decreased [Recovered/Resolved]
  - Paraesthesia [Unknown]
  - Musculoskeletal stiffness [Unknown]
  - Urinary tract infection [Recovered/Resolved]
  - Balance disorder [Unknown]
  - Dizziness [Recovered/Resolved]
  - Headache [Recovered/Resolved]
  - Hemiplegia [Recovered/Resolved]
  - Hypoaesthesia [Recovered/Resolved]
  - Aspartate aminotransferase abnormal [Recovered/Resolved]
  - Multiple sclerosis [Recovered/Resolved]
  - Gait disturbance [Recovered/Resolved]

NARRATIVE: CASE EVENT DATE: 20190219
